FAERS Safety Report 14151197 (Version 2)
Quarter: 2017Q4

REPORT INFORMATION
  Report Type: Spontaneous
  Country: US (occurrence: US)
  Receive Date: 20171102
  Receipt Date: 20171201
  Transmission Date: 20180321
  Serious: No
  Sender: FDA-Public Use
  Company Number: US-BRISTOL-MYERS SQUIBB COMPANY-BMS-2017-098766

PATIENT
  Age: 47 Year
  Sex: Female
  Weight: 126.5 kg

DRUGS (2)
  1. METFORMIN [Concomitant]
     Active Substance: METFORMIN HYDROCHLORIDE
     Indication: PRODUCT USED FOR UNKNOWN INDICATION
     Dosage: 500 MG, QD
     Route: 065
  2. KENALOG-40 [Suspect]
     Active Substance: TRIAMCINOLONE ACETONIDE
     Indication: PERIARTHRITIS
     Dosage: 1 DF, QD
     Route: 014
     Dates: start: 20171026

REACTIONS (1)
  - Expired device used [Unknown]

NARRATIVE: CASE EVENT DATE: 20171026
